FAERS Safety Report 9849133 (Version 1)
Quarter: 2013Q4

REPORT INFORMATION
  Report Type: Spontaneous
  Country: US (occurrence: None)
  Receive Date: 20131223
  Receipt Date: 20131223
  Transmission Date: 20140711
  Serious: Yes (Other)
  Sender: FDA-Public Use
  Company Number: CABO-13003646

PATIENT
  Age: 25 Year
  Sex: Female
  Weight: 138.6 kg

DRUGS (10)
  1. COMETRIQ [Suspect]
     Indication: THYROID CANCER
     Route: 048
     Dates: start: 20131104
  2. BIOTIN (BIOTIN) [Concomitant]
  3. CALCIUM + VITAMIN D (CALCIUM CARBONATE, COLECALCIFEROL) [Concomitant]
  4. CYMBALTA (DULOXETINE HYDROCHLORIDE) [Concomitant]
  5. IBUPROFEN (IBUPROFEN SODIUM) [Concomitant]
  6. SYNTHROID (LEVOTHYROXINE SODIUM) [Concomitant]
  7. CYTOMEL (LIOTHYRONINE SODIUM) [Concomitant]
  8. METFORMIN HCL (METFORMIN HYDROCHLORIDE) [Concomitant]
  9. TOPROL XL (METOPROLOL SUCCINATE) (100 MILLIGRAM) (METOPROLOL SUCCINATE) [Concomitant]
  10. VITAMIN D (COLECALCIFEROL) [Concomitant]

REACTIONS (3)
  - Feeling abnormal [None]
  - Fatigue [None]
  - Diarrhoea [None]
